FAERS Safety Report 13627138 (Version 1)
Quarter: 2017Q2

REPORT INFORMATION
  Report Type: Report from Study
  Country: CN (occurrence: CN)
  Receive Date: 20170608
  Receipt Date: 20170608
  Transmission Date: 20170830
  Serious: Yes (Other)
  Sender: FDA-Public Use
  Company Number: CN-ASTELLAS-2017US018510

PATIENT
  Sex: Male

DRUGS (3)
  1. ERLOTINIB [Suspect]
     Active Substance: ERLOTINIB
     Route: 048
  2. ERLOTINIB [Suspect]
     Active Substance: ERLOTINIB
     Route: 048
  3. ERLOTINIB [Suspect]
     Active Substance: ERLOTINIB
     Indication: NON-SMALL CELL LUNG CANCER
     Route: 048
     Dates: start: 20161106

REACTIONS (5)
  - Chest pain [Unknown]
  - Discomfort [Unknown]
  - Diarrhoea [Unknown]
  - Purpura [Unknown]
  - Pyrexia [Unknown]
